FAERS Safety Report 8833259 (Version 2)
Quarter: 2013Q1

REPORT INFORMATION
  Report Type: Spontaneous
  Country: US (occurrence: US)
  Receive Date: 20121010
  Receipt Date: 20130108
  Transmission Date: 20140127
  Serious: Yes (Other)
  Sender: FDA-Public Use
  Company Number: PHEH2012US019248

PATIENT
  Sex: Female

DRUGS (4)
  1. FLUTICASONE PROPIONATE [Concomitant]
  2. RECLAST [Suspect]
     Indication: OSTEOPOROSIS
     Dosage: 5 MG/100 ML ANNUALLY
     Route: 042
     Dates: start: 20111122
  3. LOTREL [Concomitant]
  4. LEVOTHYROXINE [Concomitant]

REACTIONS (9)
  - Gastrointestinal disorder [Unknown]
  - Weight decreased [Unknown]
  - Gingival pain [Unknown]
  - Muscular weakness [Unknown]
  - Arthralgia [Unknown]
  - Nausea [Unknown]
  - Decreased appetite [Unknown]
  - Bone pain [Unknown]
  - Myalgia [Unknown]
